FAERS Safety Report 13152338 (Version 2)
Quarter: 2017Q1

REPORT INFORMATION
  Report Type: Spontaneous
  Country: ES (occurrence: ES)
  Receive Date: 20170125
  Receipt Date: 20170130
  Transmission Date: 20170428
  Serious: Yes (Other)
  Sender: FDA-Public Use
  Company Number: ES-BAUSCH-BL-2017-001665

PATIENT
  Age: 59 Year
  Sex: Male
  Weight: 95 kg

DRUGS (5)
  1. TARGRETIN [Suspect]
     Active Substance: BEXAROTENE
     Route: 065
  2. FENOFIBRATE. [Concomitant]
     Active Substance: FENOFIBRATE
     Indication: PRODUCT USED FOR UNKNOWN INDICATION
  3. TARGRETIN [Suspect]
     Active Substance: BEXAROTENE
     Indication: PRODUCT USED FOR UNKNOWN INDICATION
     Route: 065
  4. TARGRETIN [Suspect]
     Active Substance: BEXAROTENE
     Route: 065
  5. TARGRETIN [Suspect]
     Active Substance: BEXAROTENE
     Route: 065
     Dates: end: 201701

REACTIONS (2)
  - Acute myocardial infarction [Recovered/Resolved]
  - Hypertriglyceridaemia [Recovering/Resolving]
